FAERS Safety Report 22159251 (Version 1)
Quarter: 2023Q1

REPORT INFORMATION
  Report Type: Spontaneous
  Country: US (occurrence: US)
  Receive Date: 20230331
  Receipt Date: 20230331
  Transmission Date: 20230418
  Serious: No
  Sender: FDA-Public Use
  Company Number: US-TENSHI KAIZEN PRIVATE LIMITED-2023TK000002

PATIENT

DRUGS (1)
  1. LORATADINE ODT [Suspect]
     Active Substance: LORATADINE
     Indication: Product used for unknown indication
     Dosage: 5 MILLIGRAM, ONE MEDICATION FOR 4 DAYS
     Route: 048

REACTIONS (1)
  - Drug ineffective [Unknown]
